FAERS Safety Report 10088267 (Version 1)
Quarter: 2014Q2

REPORT INFORMATION
  Report Type: Spontaneous
  Country: US (occurrence: US)
  Receive Date: 20140421
  Receipt Date: 20140421
  Transmission Date: 20141212
  Serious: No
  Sender: FDA-Public Use
  Company Number: US-009507513-1404USA005028

PATIENT
  Age: 67 Year
  Sex: Female

DRUGS (7)
  1. DULERA [Suspect]
     Indication: ASTHMA
     Dosage: 200MCG/5MCG /2 PUFFS; TWICE DAILY
     Route: 055
     Dates: start: 20140217, end: 20140405
  2. PREDNISONE [Concomitant]
     Dosage: 2.5 MG, ONCE DAILY
  3. LEVOTHYROXINE SODIUM [Concomitant]
     Dosage: 100 MICROGRAM, ONCE DAILY
  4. WARFARIN [Concomitant]
     Dosage: 5 MG THREE TIMES WEEKLY
  5. WARFARIN [Concomitant]
     Dosage: 7.5 MG FOUR TIMES WEEKLY
  6. ATORVASTATIN [Concomitant]
     Dosage: 40 MG, ONCE DAILY
  7. COZAAR [Concomitant]
     Dosage: 10 MG, DAILY

REACTIONS (2)
  - Nasal inflammation [Recovering/Resolving]
  - Sinusitis [Recovering/Resolving]
